FAERS Safety Report 6402839-X (Version None)
Quarter: 2009Q4

REPORT INFORMATION
  Report Type: 
  Country: None (occurrence: None)
  Receive Date: 20091016
  Receipt Date: 20091007
  Transmission Date: 20100525
  Serious: Yes (Hospitalization)
  Sender: FDA-Public Use
  Company Number: US-BIOGENIDEC-2006BI000262

PATIENT
  Age: 41 Year
  Sex: Female

DRUGS (4)
  1. AVONEX [Suspect]
     Indication: MULTIPLE SCLEROSIS
     Route: 030
     Dates: start: 19971201, end: 19980101
  2. AVONEX [Suspect]
     Route: 030
     Dates: start: 20010801, end: 20030801
  3. AVONEX [Suspect]
     Route: 030
     Dates: start: 20030801, end: 20051001
  4. AVONEX [Suspect]
     Route: 030
     Dates: start: 20060203, end: 20090501

REACTIONS (1)
  - NO ADVERSE EVENT [None]
